FAERS Safety Report 6432837-1 (Version None)
Quarter: 2009Q4

REPORT INFORMATION
  Report Type: 
  Country: None (occurrence: None)
  Receive Date: 20091109
  Receipt Date: 20091102
  Transmission Date: 20100525
  Serious: Yes (Other)
  Sender: FDA-Public Use
  Company Number: B0599435A

PATIENT
  Sex: Male

DRUGS (2)
  1. RELENZA [Suspect]
     Indication: INFLUENZA
     Dosage: 10MG TWICE PER DAY
     Route: 055
     Dates: start: 20091019, end: 20091023
  2. COCARL [Concomitant]
     Indication: ANTIPYRESIS
     Dosage: 400MG PER DAY
     Route: 048

REACTIONS (2)
  - ABNORMAL BEHAVIOUR [None]
  - FOOT FRACTURE [None]
